FAERS Safety Report 15698998 (Version 2)
Quarter: 2018Q4

REPORT INFORMATION
  Report Type: Spontaneous
  Country: US (occurrence: US)
  Receive Date: 20181207
  Receipt Date: 20181210
  Transmission Date: 20190205
  Serious: No
  Sender: FDA-Public Use
  Company Number: US-PFIZER INC-2018501512

PATIENT
  Age: 70 Year
  Sex: Female

DRUGS (6)
  1. MECLIZINE HCL [Suspect]
     Active Substance: MECLIZINE HYDROCHLORIDE
     Dosage: UNK
  2. GABAPENTIN ENACARBIL [Suspect]
     Active Substance: GABAPENTIN ENACARBIL
     Dosage: UNK
  3. HYDROMORPHONE HYDROCHLORIDE. [Suspect]
     Active Substance: HYDROMORPHONE HYDROCHLORIDE
     Dosage: UNK
  4. GABAPENTIN. [Suspect]
     Active Substance: GABAPENTIN
     Dosage: UNK
     Dates: start: 20181129
  5. FEBUXOSTAT. [Suspect]
     Active Substance: FEBUXOSTAT
     Dosage: UNK
  6. OXYCODONE HYDROCHLORIDE. [Suspect]
     Active Substance: OXYCODONE HYDROCHLORIDE
     Dosage: UNK

REACTIONS (1)
  - Drug hypersensitivity [Unknown]
